FAERS Safety Report 6074413-9 (Version None)
Quarter: 2009Q1

REPORT INFORMATION
  Report Type: 
  Country: None (occurrence: None)
  Receive Date: 20090206
  Receipt Date: 20090121
  Transmission Date: 20090719
  Serious: Yes (Other)
  Sender: FDA-Public Use
  Company Number: 8033967

PATIENT
  Age: 4 Year
  Sex: Male

DRUGS (1)
  1. KEPPRA [Suspect]
     Indication: PARTIAL SEIZURES
     Dosage: 300 MG 2/D PO
     Route: 048
     Dates: start: 20080118

REACTIONS (4)
  - HYPOTHERMIA [None]
  - PALLOR [None]
  - SKIN DISCOLOURATION [None]
  - TREMOR [None]
